FAERS Safety Report 21471457 (Version 1)
Quarter: 2022Q4

REPORT INFORMATION
  Report Type: Spontaneous
  Country: US (occurrence: US)
  Receive Date: 20221018
  Receipt Date: 20221018
  Transmission Date: 20230113
  Serious: Yes (Hospitalization, Other)
  Sender: FDA-Public Use
  Company Number: US-TORRENT-00012051

PATIENT
  Age: 78 Year
  Sex: Male

DRUGS (3)
  1. CLOPIDOGREL [Suspect]
     Active Substance: CLOPIDOGREL BISULFATE
     Indication: Percutaneous coronary intervention
     Dosage: UNKNOWN
     Route: 065
  2. APIXABAN [Suspect]
     Active Substance: APIXABAN
     Indication: Atrial fibrillation
     Dosage: UNKNOWN
     Route: 065
  3. ASPIRIN [Suspect]
     Active Substance: ASPIRIN
     Indication: Percutaneous coronary intervention
     Dosage: UNKNOWN
     Route: 065

REACTIONS (5)
  - Gastrointestinal haemorrhage [Unknown]
  - Mitral valve incompetence [Unknown]
  - Treatment failure [Unknown]
  - Atelectasis [Recovering/Resolving]
  - Respiratory failure [Unknown]
